FAERS Safety Report 9972722 (Version 1)
Quarter: 2014Q1

REPORT INFORMATION
  Report Type: Spontaneous
  Country: US (occurrence: None)
  Receive Date: 20140127
  Receipt Date: 20140127
  Transmission Date: 20141002
  Serious: Yes (Hospitalization)
  Sender: FDA-Public Use
  Company Number: 1294831

PATIENT
  Age: 50 Year
  Sex: Female

DRUGS (1)
  1. RITUXAN [Suspect]
     Indication: VASCULITIS
     Dosage: DATE OF THE LAST DOSE OF RITUXIMAB: 17/OCT/2013, UNKNOWN

REACTIONS (8)
  - Serum sickness [None]
  - Rash generalised [None]
  - Arthralgia [None]
  - Hypertension [None]
  - Pruritus generalised [None]
  - Generalised erythema [None]
  - Pyrexia [None]
  - Urticaria [None]
